FAERS Safety Report 8590956-8 (Version None)
Quarter: 2012Q3

REPORT INFORMATION
  Report Type: 
  Country: None (occurrence: None)
  Receive Date: 20120813
  Receipt Date: 20120802
  Transmission Date: 20120928
  Serious: Yes (Other)
  Sender: FDA-Public Use
  Company Number: FR-BAXTER-2012BAX013490

PATIENT
  Sex: Female

DRUGS (15)
  1. EPIRUBICIN [Suspect]
     Route: 042
     Dates: start: 20110916
  2. NEUPOGEN [Concomitant]
     Route: 065
     Dates: start: 20110902
  3. TAXOL [Concomitant]
     Route: 065
     Dates: end: 20120130
  4. TAMOXIFEN CITRATE [Concomitant]
     Route: 065
     Dates: start: 20120515
  5. DOCETAXEL [Concomitant]
     Route: 065
     Dates: start: 20111110
  6. CYCLOPHOSPHAMIDE [Suspect]
     Route: 042
     Dates: start: 20111014, end: 20111014
  7. EPIRUBICIN [Suspect]
     Route: 042
     Dates: start: 20110930
  8. ACETAMINOPHEN AND CODEINE PHOSPHATE [Concomitant]
     Route: 065
  9. DOCETAXEL [Concomitant]
     Route: 065
     Dates: start: 20111202
  10. CYCLOPHOSPHAMIDE [Suspect]
     Route: 042
     Dates: start: 20110916
  11. CYCLOPHOSPHAMIDE [Suspect]
     Route: 042
     Dates: start: 20110902
  12. EPIRUBICIN [Suspect]
     Route: 042
     Dates: start: 20110902
  13. EPIRUBICIN [Suspect]
     Route: 042
     Dates: start: 20111014, end: 20111014
  14. CYCLOPHOSPHAMIDE [Suspect]
     Route: 042
     Dates: start: 20110930
  15. ACETAMINOPHEN AND CODEINE PHOSPHATE [Concomitant]

REACTIONS (1)
  - OESOPHAGEAL CANDIDIASIS [None]
